FAERS Safety Report 7315013-X (Version None)
Quarter: 2011Q1

REPORT INFORMATION
  Report Type: 
  Country: None (occurrence: None)
  Receive Date: 20110225
  Receipt Date: 20100304
  Transmission Date: 20110831
  Serious: No
  Sender: FDA-Public Use
  Company Number: US-MYLANLABS-2010S1003880

PATIENT
  Sex: Male

DRUGS (3)
  1. CLARAVIS [Suspect]
  2. ACCUTANE [Suspect]
     Indication: ACNE
     Dates: start: 20071201
  3. AMNESTEEM [Suspect]
     Dates: end: 20100201

REACTIONS (1)
  - DRY SKIN [None]
